FAERS Safety Report 7341214-0 (Version None)
Quarter: 2011Q1

REPORT INFORMATION
  Report Type: 
  Country: None (occurrence: None)
  Receive Date: 20110309
  Receipt Date: 20110308
  Transmission Date: 20110831
  Serious: Yes (Hospitalization, Other)
  Sender: FDA-Public Use
  Company Number: IT-BRISTOL-MYERS SQUIBB COMPANY-15544794

PATIENT
  Age: 58 Year
  Sex: Female

DRUGS (4)
  1. TALOFEN [Concomitant]
     Dosage: TALOFEN 25MG/ML INJECTABLE SOLUTION
  2. TAVOR [Concomitant]
     Dosage: TAVOR 4MG/ML INJECTABLE SOLUTION
  3. ABILIFY [Suspect]
     Indication: BIPOLAR DISORDER
     Dosage: 14-23NOV10(15MG),24NOV-26DEC10(30MG) DOSE INCREASED TO 30MG
     Dates: start: 20101114, end: 20101226
  4. TOLEP [Concomitant]
     Dosage: TOLEP 300MG TABSX2

REACTIONS (1)
  - MANIA [None]
